FAERS Safety Report 4512920-8 (Version None)
Quarter: 2004Q4

REPORT INFORMATION
  Report Type: 
  Country: None (occurrence: None)
  Receive Date: 20041130
  Receipt Date: 20041115
  Transmission Date: 20050328
  Serious: Yes (Other)
  Sender: FDA-Public Use
  Company Number: 200421364GDDC

PATIENT
  Age: 59 Year
  Sex: Female
  Weight: 79.8 kg

DRUGS (4)
  1. DOCETAXEL [Suspect]
     Indication: OVARIAN CANCER
     Route: 042
     Dates: start: 20040604, end: 20040924
  2. BECLOMETHASONE DIPROPIONATE [Concomitant]
     Indication: ASTHMA
     Route: 048
     Dates: start: 20040830
  3. VENTOLIN [Concomitant]
     Indication: ASTHMA
     Route: 048
     Dates: start: 20040830
  4. CLEAR EYES [Concomitant]
     Indication: LACRIMATION INCREASED
     Route: 031
     Dates: start: 20040601

REACTIONS (4)
  - EPISTAXIS [None]
  - LACRIMATION INCREASED [None]
  - NASAL SEPTUM PERFORATION [None]
  - SCAB [None]
